FAERS Safety Report 4899124-4 (Version None)
Quarter: 2006Q1

REPORT INFORMATION
  Report Type: 
  Country: None (occurrence: None)
  Receive Date: 20060202
  Receipt Date: 20051024
  Transmission Date: 20060701
  Serious: Yes (Death)
  Sender: FDA-Public Use
  Company Number: JP-SANOFI-SYNTHELABO-A01200507285

PATIENT
  Age: 59 Year
  Sex: Female
  Weight: 45 kg

DRUGS (11)
  1. OXALIPLATIN [Suspect]
     Indication: RECTAL CANCER
     Dosage: 100 MG/BODY, DR, D1
     Dates: start: 20051011, end: 20051011
  2. FLUOROURACIL [Suspect]
     Indication: RECTAL CANCER
     Dosage: 500 MG/BODY IN BOLUS THEN 750 MG/BODY AS CONTINUOUS INFUSION, D1+2
     Dates: start: 20051011, end: 20051012
  3. CALCIUM LEVOFOLINATE [Suspect]
     Indication: RECTAL CANCER
     Route: 042
     Dates: start: 20051011, end: 20051011
  4. GRANISETRON [Concomitant]
     Route: 042
     Dates: start: 20051011, end: 20051011
  5. DEXAMETHASONE TAB [Concomitant]
     Route: 042
     Dates: start: 20051011, end: 20051011
  6. AMLODIPINE [Concomitant]
     Route: 048
     Dates: end: 20051012
  7. LANSOPRAZOLE [Concomitant]
     Dates: end: 20051012
  8. ETIZOLAM [Concomitant]
     Route: 048
     Dates: end: 20051012
  9. TRIAZOLAM [Concomitant]
     Dates: end: 20051012
  10. FLURBIPROFEN [Concomitant]
     Dates: start: 20051013, end: 20051014
  11. DOPAMINE HCL [Concomitant]
     Dates: start: 20051014, end: 20051014

REACTIONS (11)
  - ABDOMINAL PAIN [None]
  - BLOOD PRESSURE DECREASED [None]
  - DEPRESSED LEVEL OF CONSCIOUSNESS [None]
  - DIARRHOEA [None]
  - GASTROINTESTINAL INFECTION [None]
  - NAUSEA [None]
  - PALLOR [None]
  - SEPTIC SHOCK [None]
  - SHOCK [None]
  - THROMBOCYTOPENIA [None]
  - VOMITING [None]
